FAERS Safety Report 5811209-4 (Version None)
Quarter: 2008Q3

REPORT INFORMATION
  Report Type: 
  Country: None (occurrence: None)
  Receive Date: 20080716
  Receipt Date: 20080714
  Transmission Date: 20090109
  Serious: Yes (Hospitalization, Disabling)
  Sender: FDA-Public Use
  Company Number: IN-BRISTOL-MYERS SQUIBB COMPANY-14248298

PATIENT
  Age: 37 Year
  Sex: Male

DRUGS (3)
  1. TAXOL [Suspect]
  2. CISPLATIN [Suspect]
  3. IFOSFAMIDE [Suspect]

REACTIONS (1)
  - TOXIC ENCEPHALOPATHY [None]
